FAERS Safety Report 5439513-2 (Version None)
Quarter: 2007Q3

REPORT INFORMATION
  Report Type: 
  Country: None (occurrence: None)
  Receive Date: 20070831
  Receipt Date: 20070820
  Transmission Date: 20080115
  Serious: Yes (Other)
  Sender: FDA-Public Use
  Company Number: GB-ROCHE-512922

PATIENT
  Age: 20 Year
  Sex: Male
  Weight: 78 kg

DRUGS (1)
  1. NAPROSYN [Suspect]
     Dosage: 2ND INDICATION: PAIN.
     Route: 048
     Dates: start: 20070727, end: 20070803

REACTIONS (4)
  - CHAPPED LIPS [None]
  - GINGIVAL ULCERATION [None]
  - LIP SWELLING [None]
  - MOUTH ULCERATION [None]
